FAERS Safety Report 24690612 (Version 1)
Quarter: 2024Q4

REPORT INFORMATION
  Report Type: Spontaneous
  Country: US (occurrence: None)
  Receive Date: 20241202
  Receipt Date: 20241202
  Transmission Date: 20250114
  Serious: Yes (Hospitalization)
  Sender: Public
  Company Number: None

PATIENT
  Age: 46 Year
  Sex: Female

DRUGS (1)
  1. HUMIRA [Suspect]
     Active Substance: ADALIMUMAB
     Indication: Psoriatic arthropathy
     Dosage: OTHER FREQUENCY : Q2WEEKS;?
     Route: 058
     Dates: start: 20240806

REACTIONS (13)
  - Hypersensitivity [None]
  - Pruritus [None]
  - Pruritus [None]
  - Urticaria [None]
  - Peripheral swelling [None]
  - Injection site swelling [None]
  - Injection site erythema [None]
  - Injection site pruritus [None]
  - Pruritus [None]
  - Pruritus [None]
  - Depression [None]
  - Abdominal pain [None]
  - Abdominal distension [None]

NARRATIVE: CASE EVENT DATE: 20241130
